APPROVED DRUG PRODUCT: GLYDO
Active Ingredient: LIDOCAINE HYDROCHLORIDE
Strength: 2%
Dosage Form/Route: JELLY;TOPICAL
Application: A201094 | Product #001 | TE Code: AT
Applicant: SAGENT PHARMACEUTICALS INC
Approved: Apr 28, 2014 | RLD: No | RS: Yes | Type: RX